FAERS Safety Report 4418382-3 (Version None)
Quarter: 2004Q3

REPORT INFORMATION
  Report Type: 
  Country: None (occurrence: None)
  Receive Date: 20040809
  Receipt Date: 20040408
  Transmission Date: 20050211
  Serious: No
  Sender: FDA-Public Use
  Company Number: US-GLAXOSMITHKLINE-A0506391A

PATIENT
  Sex: Female

DRUGS (3)
  1. PAXIL CR [Suspect]
     Indication: DEPRESSION
     Dosage: 12.5MG PER DAY
     Route: 048
  2. LAMICTAL [Suspect]
  3. TRILEPTAL [Concomitant]

REACTIONS (3)
  - DRUG INEFFECTIVE [None]
  - SOMNOLENCE [None]
  - WEIGHT INCREASED [None]
